FAERS Safety Report 4439228-3 (Version None)
Quarter: 2004Q3

REPORT INFORMATION
  Report Type: 
  Country: None (occurrence: None)
  Receive Date: 20040831
  Receipt Date: 20040818
  Transmission Date: 20050211
  Serious: Yes (Other)
  Sender: FDA-Public Use
  Company Number: 2004057661

PATIENT

DRUGS (1)
  1. DILANTIN [Suspect]

REACTIONS (1)
  - PEMPHIGUS [None]
